FAERS Safety Report 8010884-6 (Version None)
Quarter: 2011Q4

REPORT INFORMATION
  Report Type: 
  Country: None (occurrence: None)
  Receive Date: 20111228
  Receipt Date: 20111227
  Transmission Date: 20120403
  Serious: Yes (Death, Hospitalization)
  Sender: FDA-Public Use
  Company Number: US-ROCHE-1019866

PATIENT
  Sex: Male
  Weight: 93.07 kg

DRUGS (6)
  1. OXYCODONE HCL [Concomitant]
     Indication: PAIN
     Route: 048
  2. MS CONTIN [Concomitant]
     Indication: PAIN
     Route: 048
     Dates: start: 20111017
  3. NEURONTIN [Concomitant]
     Indication: NEUROPATHY PERIPHERAL
     Route: 048
     Dates: start: 20111010
  4. MORPHINE SULFATE [Concomitant]
     Indication: PAIN
     Dosage: 10-20 MG
     Route: 048
     Dates: start: 20111129
  5. ZOFRAN [Concomitant]
     Indication: NAUSEA
     Dosage: 4-8 MG
     Route: 048
     Dates: start: 20111017
  6. ZELBORAF [Suspect]
     Indication: MALIGNANT MELANOMA
     Dosage: UNKNOWN
     Route: 048
     Dates: start: 20111017

REACTIONS (6)
  - HEPATIC ENZYME INCREASED [None]
  - NAUSEA [None]
  - HOSPITALISATION [None]
  - DEATH [None]
  - DEHYDRATION [None]
  - LIVER FUNCTION TEST ABNORMAL [None]
